FAERS Safety Report 5611636-4 (Version None)
Quarter: 2008Q1

REPORT INFORMATION
  Report Type: 
  Country: None (occurrence: None)
  Receive Date: 20080201
  Receipt Date: 20080125
  Transmission Date: 20080703
  Serious: Yes (Hospitalization)
  Sender: FDA-Public Use
  Company Number: BE-ABBOTT-08P-013-0435291-00

PATIENT
  Sex: Female

DRUGS (2)
  1. ELTHYRONE [Suspect]
     Indication: HYPOTHYROIDISM
  2. UNSPECIFIED MEDICATIONS [Concomitant]
     Indication: DRUG USE FOR UNKNOWN INDICATION

REACTIONS (2)
  - GENERALISED ERYTHEMA [None]
  - TOXIC SKIN ERUPTION [None]
